FAERS Safety Report 9674146 (Version 3)
Quarter: 2014Q1

REPORT INFORMATION
  Report Type: Spontaneous
  Country: US (occurrence: US)
  Receive Date: 20131106
  Receipt Date: 20140102
  Transmission Date: 20141002
  Serious: No
  Sender: FDA-Public Use
  Company Number: US-AMGEN-USASP2012009095

PATIENT
  Age: 62 Year
  Sex: Male
  Weight: 102 kg

DRUGS (7)
  1. ENBREL [Suspect]
     Indication: PSORIASIS
     Dosage: 50 MG, QWK
     Route: 058
     Dates: start: 20080110
  2. METOPROLOL TARTRATE [Concomitant]
     Dosage: 100 MG, UNK
  3. LISINOPRIL [Concomitant]
     Dosage: 30 MG, UNK
  4. IBUPROFEN [Concomitant]
     Dosage: 200 MG, UNK
  5. ASA [Concomitant]
     Dosage: 81 MG, UNK
  6. ROBITUSSIN COLD COLD + CONGESTION [Concomitant]
     Dosage: UNK
  7. MUCINEX COUGH [Concomitant]
     Dosage: UNK

REACTIONS (5)
  - Respiratory tract congestion [Unknown]
  - Cough [Recovered/Resolved]
  - Nasal discharge discolouration [Unknown]
  - Nasopharyngitis [Unknown]
  - Sinusitis [Recovered/Resolved]
